FAERS Safety Report 10228389 (Version 1)
Quarter: 2014Q2

REPORT INFORMATION
  Report Type: Spontaneous
  Country: US (occurrence: None)
  Receive Date: 20140505
  Receipt Date: 20140505
  Transmission Date: 20141212
  Serious: No
  Sender: FDA-Public Use
  Company Number: US-015132

PATIENT
  Sex: Female

DRUGS (1)
  1. PICO-SALAX [Suspect]
     Indication: BOWEL PREPARATION
     Dosage: FIRST PACKET ONLY ORAL
     Route: 048
     Dates: start: 20140303, end: 20140303

REACTIONS (17)
  - Dysstasia [None]
  - Retching [None]
  - Fatigue [None]
  - Hyperhidrosis [None]
  - Tremor [None]
  - Throat irritation [None]
  - Burning sensation [None]
  - Epistaxis [None]
  - Haemorrhage [None]
  - Pharyngeal erythema [None]
  - Scab [None]
  - Rhinorrhoea [None]
  - Oropharyngeal pain [None]
  - Pharyngeal oedema [None]
  - Headache [None]
  - Product quality issue [None]
  - Vomiting [None]
